FAERS Safety Report 4287406-9 (Version None)
Quarter: 2004Q1

REPORT INFORMATION
  Report Type: 
  Country: None (occurrence: None)
  Receive Date: 20040205
  Receipt Date: 20040128
  Transmission Date: 20041129
  Serious: Yes (Hospitalization)
  Sender: FDA-Public Use
  Company Number: TCI2004A00269

PATIENT
  Sex: Female

DRUGS (2)
  1. LEUPROLIDE ACETATE [Suspect]
     Indication: UTERINE LEIOMYOMA
     Dosage: 1.88 MG (1.88 MG, 1 IN 28 D), SUBCUTANEOUS X 6
     Route: 058
     Dates: start: 20030809
  2. MUCOSTA (REBAMIPIDE) (PREPARATION FOR ORAL USE (NOS)) [Suspect]
     Dosage: PER ORAL
     Route: 048

REACTIONS (2)
  - HYPERSENSITIVITY [None]
  - PANCYTOPENIA [None]
